FAERS Safety Report 19660377 (Version 5)
Quarter: 2022Q4

REPORT INFORMATION
  Report Type: Spontaneous
  Country: JP (occurrence: JP)
  Receive Date: 20210805
  Receipt Date: 20221205
  Transmission Date: 20230112
  Serious: Yes (Life-Threatening, Hospitalization, Other)
  Sender: FDA-Public Use
  Company Number: JP-PFIZER INC-202100952620

PATIENT
  Age: 53 Year
  Sex: Female

DRUGS (8)
  1. SERTRALINE [Interacting]
     Active Substance: SERTRALINE HYDROCHLORIDE
     Indication: Depression
     Dosage: UNK
     Route: 048
  2. FOSPHENYTOIN SODIUM [Interacting]
     Active Substance: FOSPHENYTOIN SODIUM
     Indication: Epilepsy
     Dosage: 18 MILLIGRAM/KILOGRAM, BY DRIP INFUSION
     Route: 042
  3. PHENYTOIN [Interacting]
     Active Substance: PHENYTOIN
     Indication: Temporal lobe epilepsy
     Dosage: 200 MILLIGRAM, QD
     Route: 048
  4. PHENYTOIN [Interacting]
     Active Substance: PHENYTOIN
     Dosage: 100 MILLIGRAM, QD
     Route: 048
     Dates: start: 201808
  5. ZONISAMIDE [Interacting]
     Active Substance: ZONISAMIDE
     Indication: Temporal lobe epilepsy
     Dosage: 300 MILLIGRAM, QD
     Route: 048
  6. SULPIRIDE [Interacting]
     Active Substance: SULPIRIDE
     Indication: Depression
     Dosage: UNK
     Route: 048
  7. LEVETIRACETAM [Concomitant]
     Active Substance: LEVETIRACETAM
     Indication: Temporal lobe epilepsy
     Dosage: 2000 MILLIGRAM, QD
     Route: 048
     Dates: start: 201807
  8. LEVETIRACETAM [Concomitant]
     Active Substance: LEVETIRACETAM
     Dosage: DOSE INCREASED
     Route: 048
     Dates: start: 201807

REACTIONS (7)
  - Drug interaction [Recovered/Resolved]
  - Cardio-respiratory arrest [Recovered/Resolved]
  - Cardiac arrest [Recovered/Resolved]
  - Electrocardiogram abnormal [Recovered/Resolved]
  - Electrocardiogram ST segment elevation [Recovered/Resolved]
  - Electrocardiogram QT prolonged [Recovered/Resolved]
  - Ventricular tachycardia [Recovered/Resolved]
